FAERS Safety Report 11108978 (Version 1)
Quarter: 2015Q2

REPORT INFORMATION
  Report Type: Spontaneous
  Country: US (occurrence: None)
  Receive Date: 20150511
  Receipt Date: 20150511
  Transmission Date: 20150821
  Serious: Yes (Life-Threatening, Disabling, Other)
  Sender: FDA-Public Use
  Company Number: None

PATIENT
  Age: 52 Year
  Sex: Female
  Weight: 67.59 kg

DRUGS (9)
  1. LEVOTHYROXINE [Concomitant]
     Active Substance: LEVOTHYROXINE
  2. COMPAZINE [Concomitant]
     Active Substance: PROCHLORPERAZINE MALEATE
  3. IMITREX [Concomitant]
     Active Substance: SUMATRIPTAN\SUMATRIPTAN SUCCINATE
  4. VITAMIN D [Concomitant]
     Active Substance: CHOLECALCIFEROL
  5. TOPIRAMATE. [Suspect]
     Active Substance: TOPIRAMATE
     Indication: MIGRAINE PROPHYLAXIS
     Route: 048
     Dates: start: 20140401, end: 20150503
  6. B-2 [Concomitant]
  7. NARATRIPTAN [Concomitant]
     Active Substance: NARATRIPTAN HYDROCHLORIDE
  8. TOPAMAX [Concomitant]
     Active Substance: TOPIRAMATE
  9. FISH OIL [Concomitant]
     Active Substance: FISH OIL

REACTIONS (8)
  - Agitation [None]
  - Product substitution issue [None]
  - Anxiety [None]
  - Morbid thoughts [None]
  - Sleep disorder [None]
  - Impaired work ability [None]
  - Family stress [None]
  - Feeling abnormal [None]

NARRATIVE: CASE EVENT DATE: 20150501
